FAERS Safety Report 9251519 (Version 2)
Quarter: 2013Q4

REPORT INFORMATION
  Report Type: Spontaneous
  Country: US (occurrence: US)
  Receive Date: 20130424
  Receipt Date: 20131220
  Transmission Date: 20140711
  Serious: Yes (Hospitalization, Disabling, Other)
  Sender: FDA-Public Use
  Company Number: US-ASTRAZENECA-2013SE27454

PATIENT
  Age: 50 Year
  Sex: Female
  Weight: 103.9 kg

DRUGS (18)
  1. NEXIUM [Suspect]
     Indication: GASTROOESOPHAGEAL REFLUX DISEASE
     Route: 048
     Dates: start: 200608, end: 200806
  2. NEXIUM [Suspect]
     Indication: GASTROOESOPHAGEAL REFLUX DISEASE
     Route: 048
     Dates: start: 20060824
  3. OMEPRAZOLE [Suspect]
     Indication: GASTROOESOPHAGEAL REFLUX DISEASE
     Route: 048
     Dates: start: 200706, end: 200712
  4. ZANTAC [Concomitant]
     Dosage: AS NEEDED
     Dates: start: 2009
  5. TUMS [Concomitant]
     Dosage: AS NEEDED
     Dates: start: 2005, end: 2006
  6. BACLOFEN [Concomitant]
  7. NORCO [Concomitant]
  8. ROBAXIN [Concomitant]
  9. METHOTREXATE [Concomitant]
  10. FOLIC ACID [Concomitant]
  11. VITAMIN D [Concomitant]
  12. CALCIUM [Concomitant]
  13. OSTEO BI-FLEX [Concomitant]
  14. ACTONEL [Concomitant]
  15. CALCITONIN [Concomitant]
  16. MULTI VITAMIN [Concomitant]
  17. ATENOLOL [Concomitant]
  18. LISINOPRIL [Concomitant]

REACTIONS (17)
  - Arthropathy [Unknown]
  - Oral disorder [Unknown]
  - Cataract [Unknown]
  - Spondyloarthropathy [Unknown]
  - Radiculopathy [Unknown]
  - Spinal osteoarthritis [Not Recovered/Not Resolved]
  - Osteoporosis [Unknown]
  - Bone disorder [Unknown]
  - Multiple fractures [Unknown]
  - Fall [Unknown]
  - Lip injury [Unknown]
  - Diabetes mellitus [Unknown]
  - Vitamin D deficiency [Unknown]
  - Osteopenia [Unknown]
  - Osteoarthritis [Unknown]
  - Intervertebral disc degeneration [Unknown]
  - Depression [Unknown]
